FAERS Safety Report 18279827 (Version 1)
Quarter: 2020Q3

REPORT INFORMATION
  Report Type: Spontaneous
  Country: US (occurrence: US)
  Receive Date: 20200917
  Receipt Date: 20200917
  Transmission Date: 20201103
  Serious: Yes (Hospitalization)
  Sender: FDA-Public Use
  Company Number: US-FRESENIUS MEDICAL CARE RENAL THERAPIES GROUP-FMC-2009-001071

PATIENT
  Age: 57 Year
  Sex: Male
  Weight: 75.5 kg

DRUGS (2)
  1. DELFLEX WITH DEXTROSE 2.5% LOW MAGNESIUM LOW CALCIUM [Suspect]
     Active Substance: CALCIUM CHLORIDE\DEXTROSE\MAGNESIUM CHLORIDE\SODIUM CHLORIDE\SODIUM LACTATE
     Indication: END STAGE RENAL DISEASE
     Dosage: AT 1600 ML FOR 6 CYCLES WITH A LAST FILL OF 200 ML AND NO DAYTIME EXCHANGE, SINCE APRIL 2018
     Route: 033
     Dates: start: 201804
  2. DELFLEX WITH DEXTROSE 1.5% LOW MAGNESIUM LOW CALCIUM [Suspect]
     Active Substance: CALCIUM CHLORIDE\DEXTROSE\MAGNESIUM CHLORIDE\SODIUM CHLORIDE\SODIUM LACTATE
     Indication: END STAGE RENAL DISEASE
     Dosage: AT 1600 ML FOR 6 CYCLES WITH A LAST FILL OF 200 ML AND NO DAYTIME EXCHANGE, SINCE APRIL 2018
     Route: 033
     Dates: start: 201804

REACTIONS (1)
  - Hypotension [Recovered/Resolved]
